FAERS Safety Report 9540460 (Version 1)
Quarter: 2013Q3

REPORT INFORMATION
  Report Type: Spontaneous
  Country: CH (occurrence: CH)
  Receive Date: 20130920
  Receipt Date: 20130920
  Transmission Date: 20140515
  Serious: Yes (Other)
  Sender: FDA-Public Use
  Company Number: CH-ELI_LILLY_AND_COMPANY-CH201309006889

PATIENT
  Sex: Female

DRUGS (2)
  1. RALOXIFENE HYDROCHLORIDE [Suspect]
     Indication: OSTEOPENIA
     Dosage: 60 MG, QD
     Route: 048
  2. RALOXIFENE HYDROCHLORIDE [Suspect]
     Dosage: 30 MG, QD
     Route: 048

REACTIONS (3)
  - Lactose intolerance [Recovering/Resolving]
  - Intentional drug misuse [Not Recovered/Not Resolved]
  - Drug administration error [Not Recovered/Not Resolved]
